FAERS Safety Report 10301995 (Version 1)
Quarter: 2014Q3

REPORT INFORMATION
  Report Type: Spontaneous
  Country: GB (occurrence: None)
  Receive Date: 20140709
  Receipt Date: 20140709
  Transmission Date: 20150326
  Serious: Yes (Other)
  Sender: FDA-Public Use
  Company Number: 2014HINLIT0609

PATIENT
  Age: 66 Year
  Sex: Female

DRUGS (2)
  1. THYROXINE [Suspect]
     Active Substance: LEVOTHYROXINE
     Indication: PRODUCT USED FOR UNKNOWN INDICATION
  2. LITHIUM [Suspect]
     Active Substance: LITHIUM CARBONATE
     Indication: BIPOLAR DISORDER

REACTIONS (7)
  - Polyuria [None]
  - Polydipsia [None]
  - Hypercalcaemia [None]
  - Ventricular hypertrophy [None]
  - Nocturia [None]
  - Nephropathy [None]
  - Renal cyst [None]
